FAERS Safety Report 4837586-9 (Version None)
Quarter: 2005Q4

REPORT INFORMATION
  Report Type: 
  Country: None (occurrence: None)
  Receive Date: 20051024
  Receipt Date: 20050811
  Transmission Date: 20060501
  Serious: No
  Sender: FDA-Public Use
  Company Number: 216789

PATIENT
  Age: 58 Year
  Sex: Female
  Weight: 111 kg

DRUGS (17)
  1. XOLAIR [Suspect]
     Indication: ASTHMA
     Dosage: 300 MG, Q4W; SUBCUTANEOUS
     Route: 058
     Dates: start: 20050719
  2. FUROSEMIDE [Suspect]
     Indication: DRUG USE FOR UNKNOWN INDICATION
  3. SINGULAIR [Concomitant]
  4. ALBUTEROL (ALBUTEROL, ALBUTEROL SULFATE) [Concomitant]
  5. FLONASE [Concomitant]
  6. XOPENEX [Concomitant]
  7. PREDNISONE [Concomitant]
  8. ALLEGRA [Concomitant]
  9. ADVAIR (SALMETEROL XINAFOATE, FLUTICASONE PROPIONATE) [Concomitant]
  10. PROTONIX [Concomitant]
  11. ANTIBIOTIC (UNKNOWN0 (ANTIBIOTICS NOS) [Concomitant]
  12. VICODIN (HYDROCODONE BITARTRATE, ACETAMINOPHEN) [Concomitant]
  13. VICODIN (HYDROCODONE BITARTRATE, ACETAMINOPHEN) [Concomitant]
  14. BLOOD PRESSURE MEDICATION NOS (ANTIHYPERTENSIVE NOS) [Concomitant]
  15. ASPIRIN [Concomitant]
  16. DILTIAZEM HYDROCHLORIDE [Concomitant]
  17. DIOVAN [Concomitant]

REACTIONS (2)
  - MYALGIA [None]
  - PAIN IN EXTREMITY [None]
